FAERS Safety Report 12431627 (Version 4)
Quarter: 2020Q3

REPORT INFORMATION
  Report Type: Report from Study
  Country: JP (occurrence: JP)
  Receive Date: 20160603
  Receipt Date: 20200804
  Transmission Date: 20201102
  Serious: Yes (Death, Other)
  Sender: FDA-Public Use
  Company Number: JP-BRISTOL-MYERS SQUIBB COMPANY-BMS-2015-062338

PATIENT
  Age: 69 Year
  Sex: Male

DRUGS (3)
  1. NIVOLUMAB [Suspect]
     Active Substance: NIVOLUMAB
     Dosage: UNK
     Route: 065
     Dates: end: 20150430
  2. NIVOLUMAB [Suspect]
     Active Substance: NIVOLUMAB
     Indication: MALIGNANT MELANOMA
     Dosage: 160 MG, UNK
     Route: 065
     Dates: start: 20150114, end: 20150114
  3. NIVOLUMAB [Suspect]
     Active Substance: NIVOLUMAB
     Dosage: 160 MG, UNK
     Route: 065
     Dates: start: 20150327, end: 20150327

REACTIONS (17)
  - Dysuria [Not Recovered/Not Resolved]
  - Folliculitis [Recovered/Resolved]
  - Ataxia [Not Recovered/Not Resolved]
  - Hypoalbuminaemia [Not Recovered/Not Resolved]
  - Liver function test abnormal [Not Recovered/Not Resolved]
  - Headache [Recovered/Resolved]
  - Epilepsy [Recovered/Resolved]
  - Disorientation [Recovering/Resolving]
  - Dermal cyst [Recovering/Resolving]
  - White blood cell count increased [Recovered/Resolved]
  - Inflammation [Recovered/Resolved]
  - Rash [Recovered/Resolved]
  - Visual impairment [Recovering/Resolving]
  - Oedema peripheral [Not Recovered/Not Resolved]
  - Asthenia [Not Recovered/Not Resolved]
  - Death [Fatal]
  - Quadriplegia [Not Recovered/Not Resolved]

NARRATIVE: CASE EVENT DATE: 20150114
